FAERS Safety Report 4641383-7 (Version None)
Quarter: 2005Q2

REPORT INFORMATION
  Report Type: 
  Country: None (occurrence: None)
  Receive Date: 20050421
  Receipt Date: 20050407
  Transmission Date: 20051028
  Serious: Yes (Disabling)
  Sender: FDA-Public Use
  Company Number: US-GLAXOSMITHKLINE-A0553145A

PATIENT
  Age: 69 Year
  Sex: Male
  Weight: 82 kg

DRUGS (5)
  1. AQUAFRESH FLUORIDE PROTECTION TOOTHPASTE TUBE [Suspect]
     Indication: DENTAL CLEANING
     Dates: start: 19850101
  2. INDAPAMIDE [Concomitant]
     Route: 048
  3. ONE-A-DAY VITAMIN [Concomitant]
     Route: 048
  4. VITAMIN B COMPLEX CAP [Concomitant]
     Route: 048
  5. VITAMIN C [Concomitant]
     Route: 048

REACTIONS (5)
  - BLINDNESS [None]
  - CATARACT [None]
  - GLAUCOMA [None]
  - MACULAR DEGENERATION [None]
  - RETINAL HAEMORRHAGE [None]
